FAERS Safety Report 19656932 (Version 2)
Quarter: 2022Q3

REPORT INFORMATION
  Report Type: Spontaneous
  Country: US (occurrence: None)
  Receive Date: 20210804
  Receipt Date: 20220921
  Transmission Date: 20221027
  Serious: No
  Sender: FDA-Public Use
  Company Number: 2021A616333

PATIENT
  Sex: Male
  Weight: 86.2 kg

DRUGS (3)
  1. CALQUENCE [Suspect]
     Active Substance: ACALABRUTINIB
     Indication: Chronic lymphocytic leukaemia
     Route: 048
  2. COVID VACCINE [Concomitant]
     Dosage: FIRST DOSE
  3. COVID VACCINE [Concomitant]
     Dates: start: 20210209, end: 20210209

REACTIONS (2)
  - Memory impairment [Unknown]
  - Vaccine induced antibody absent [Unknown]
